FAERS Safety Report 11851889 (Version 2)
Quarter: 2016Q1

REPORT INFORMATION
  Report Type: Spontaneous
  Country: AU (occurrence: US)
  Receive Date: 20151218
  Receipt Date: 20160108
  Transmission Date: 20160526
  Serious: Yes (Other)
  Sender: FDA-Public Use
  Company Number: AU-JNJFOC-20151210297

PATIENT
  Age: 18 Month
  Sex: Male

DRUGS (1)
  1. RISPERDAL [Suspect]
     Active Substance: RISPERIDONE
     Indication: AGGRESSION
     Route: 065

REACTIONS (5)
  - Drug prescribing error [Unknown]
  - Product use issue [Unknown]
  - Aggression [Unknown]
  - Off label use [Unknown]
  - Hallucination [Unknown]
